FAERS Safety Report 25926473 (Version 5)
Quarter: 2025Q4

REPORT INFORMATION
  Report Type: Report from Study
  Country: US (occurrence: US)
  Receive Date: 20251015
  Receipt Date: 20251218
  Transmission Date: 20260117
  Serious: No
  Sender: PFIZER
  Company Number: US-PFIZER INC-202500201570

PATIENT
  Age: 7 Year
  Sex: Male
  Weight: 22.5 kg

DRUGS (3)
  1. GENOTROPIN [Suspect]
     Active Substance: SOMATROPIN
     Indication: Short stature
     Dosage: 0.8 MG, ALTERNATE DAY (0.9MG (ALTERNATE 0.8MG + 1MG) DAILY)
     Route: 058
  2. GENOTROPIN [Suspect]
     Active Substance: SOMATROPIN
     Dosage: 1.0 MG, ALTERNATE DAY, (0.9MG (ALTERNATE 0.8MG + 1MG) DAILY)
     Route: 058
  3. GENOTROPIN [Suspect]
     Active Substance: SOMATROPIN
     Dosage: 1.2 MG, DAILY AT NIGHT
     Route: 058

REACTIONS (4)
  - Drug hypersensitivity [Unknown]
  - Incorrect dose administered by device [Unknown]
  - Device material issue [Unknown]
  - Device use error [Unknown]

NARRATIVE: CASE EVENT DATE: 20250101
